FAERS Safety Report 8294511-9 (Version None)
Quarter: 2012Q2

REPORT INFORMATION
  Report Type: 
  Country: None (occurrence: None)
  Receive Date: 20120418
  Receipt Date: 20120411
  Transmission Date: 20120825
  Serious: Yes (Hospitalization, Other)
  Sender: FDA-Public Use
  Company Number: US-BAYER-2011-021167

PATIENT
  Age: 25 Year
  Sex: Female
  Weight: 49.887 kg

DRUGS (12)
  1. ZOFRAN [Concomitant]
  2. CIPROFLOXACIN HCL [Concomitant]
  3. FLAGYL [Concomitant]
  4. REGLAN [Concomitant]
  5. YASMIN [Suspect]
     Indication: ENDOMETRIOSIS
     Dosage: UNK
     Dates: start: 20040101, end: 20060101
  6. IBUPROFEN [Concomitant]
     Indication: PAIN
  7. YAZ [Suspect]
     Indication: PREMENSTRUAL SYNDROME
  8. YAZ [Suspect]
     Indication: ENDOMETRIOSIS
     Dosage: UNK
     Dates: start: 20060101, end: 20080101
  9. MORPHINE [Concomitant]
  10. YAZ [Suspect]
     Indication: DYSMENORRHOEA
  11. YASMIN [Suspect]
     Indication: PREMENSTRUAL SYNDROME
  12. YASMIN [Suspect]
     Indication: DYSMENORRHOEA

REACTIONS (10)
  - CHOLECYSTITIS CHRONIC [None]
  - PAIN [None]
  - NERVOUSNESS [None]
  - EMOTIONAL DISTRESS [None]
  - VOMITING [None]
  - FEAR OF DEATH [None]
  - ABDOMINAL DISCOMFORT [None]
  - DIARRHOEA [None]
  - LOSS OF CONSCIOUSNESS [None]
  - DEPRESSION [None]
